FAERS Safety Report 4388924-5 (Version None)
Quarter: 2004Q2

REPORT INFORMATION
  Report Type: 
  Country: None (occurrence: None)
  Receive Date: 20040628
  Receipt Date: 20040614
  Transmission Date: 20050107
  Serious: Yes (Hospitalization)
  Sender: FDA-Public Use
  Company Number: 2004-BP-03808YA

PATIENT
  Age: 78 Year
  Sex: Male

DRUGS (5)
  1. HARNAL (TAMSULOSIN) (NR) [Suspect]
     Indication: BENIGN PROSTATIC HYPERPLASIA
     Dosage: 0.4 MG (NR) PO
     Route: 048
     Dates: start: 20030301, end: 20030301
  2. HARNAL (TAMSULOSIN) (NR) [Suspect]
     Indication: PROSTATIC DISORDER
     Dosage: 0.4 MG (NR) PO
     Route: 048
     Dates: start: 20030301, end: 20030301
  3. HARNAL (TAMSULOSIN) (NR) [Suspect]
     Indication: BENIGN PROSTATIC HYPERPLASIA
     Dosage: 0.4 MG (NR) PO
     Route: 048
     Dates: start: 20040301, end: 20040416
  4. HARNAL (TAMSULOSIN) (NR) [Suspect]
     Indication: PROSTATIC DISORDER
     Dosage: 0.4 MG (NR) PO
     Route: 048
     Dates: start: 20040301, end: 20040416
  5. ACETYLSALICYLIC ACID SRT [Suspect]
     Indication: PROPHYLAXIS
     Dosage: 100 MG (NR)

REACTIONS (3)
  - ABDOMINAL PAIN [None]
  - DRUG INTERACTION [None]
  - HAEMATOCHEZIA [None]
